FAERS Safety Report 5145134-1 (Version None)
Quarter: 2006Q4

REPORT INFORMATION
  Report Type: 
  Country: None (occurrence: None)
  Receive Date: 20061107
  Receipt Date: 20060918
  Transmission Date: 20070319
  Serious: Yes (Other)
  Sender: FDA-Public Use
  Company Number: CA-ELI_LILLY_AND_COMPANY-CA200609004747

PATIENT
  Age: 56 Year
  Sex: Female
  Weight: 54 kg

DRUGS (10)
  1. FORTEO [Suspect]
     Indication: OSTEOPOROSIS
     Dosage: 20 UG, DAILY (1/D)
     Dates: start: 20050616
  2. ARAVA [Concomitant]
  3. NAPROXEN [Concomitant]
  4. PREDNISONE TAB [Concomitant]
     Dosage: 5 MG, DAILY (1/D)
  5. FLEXERIL [Concomitant]
     Dosage: 10 UNK, EACH EVENING
  6. PANTOLOC ^SOLVAY^ [Concomitant]
     Dosage: 40 UNK, DAILY (1/D)
  7. VITAMIN D [Concomitant]
     Dosage: 400 UNK, 2/D
  8. VITAMIN E [Concomitant]
  9. CALCIUM [Concomitant]
  10. REMICADE                                /UNK/ [Concomitant]
     Dosage: 300 MG, UNK
     Route: 042
     Dates: start: 20030301, end: 20060919

REACTIONS (2)
  - PETIT MAL EPILEPSY [None]
  - THERMAL BURN [None]
